FAERS Safety Report 11458960 (Version 1)
Quarter: 2015Q3

REPORT INFORMATION
  Report Type: Spontaneous
  Country: US (occurrence: US)
  Receive Date: 20150904
  Receipt Date: 20150904
  Transmission Date: 20151125
  Serious: Yes (Other)
  Sender: FDA-Public Use
  Company Number: US-TAKEDA-2014TUS005483

PATIENT

DRUGS (12)
  1. AVANDIA [Concomitant]
     Active Substance: ROSIGLITAZONE MALEATE
     Dosage: 4 MG, UNK
     Dates: start: 2002
  2. LEVEMIR [Concomitant]
     Active Substance: INSULIN DETEMIR
     Dosage: UNK
     Dates: start: 2006
  3. HUMALOG [Concomitant]
     Active Substance: INSULIN LISPRO
     Dosage: 5 IU, UNK
     Dates: start: 2003
  4. DIABETA                            /00145301/ [Concomitant]
     Dosage: 5 MG - 10 MG
  5. BYETTA [Concomitant]
     Active Substance: EXENATIDE
     Dosage: 5 MG, UNK
     Dates: start: 2007
  6. NOVOLOG 70/30 [Concomitant]
     Indication: DIABETES MELLITUS
     Dosage: UNK
  7. METFORMIN [Concomitant]
     Active Substance: METFORMIN HYDROCHLORIDE
     Dosage: 850 MG, UNK
  8. LIPITOR [Concomitant]
     Active Substance: ATORVASTATIN CALCIUM
     Indication: DIABETES MELLITUS
     Dosage: 10 MG, UNK
     Dates: start: 2002
  9. ACTOS [Suspect]
     Active Substance: PIOGLITAZONE HYDROCHLORIDE
     Dosage: 45 MG, UNK
     Route: 048
     Dates: start: 2002, end: 2010
  10. EMPIRIN COMPOUND [Concomitant]
     Dosage: 81 MG, QD
  11. ACTOS [Suspect]
     Active Substance: PIOGLITAZONE HYDROCHLORIDE
     Indication: TYPE 2 DIABETES MELLITUS
     Dosage: 45 MG, UNK
     Route: 048
     Dates: start: 20020401, end: 20101223
  12. GLUCOPHAGE [Concomitant]
     Active Substance: METFORMIN HYDROCHLORIDE
     Dosage: UNK
     Dates: start: 2003

REACTIONS (1)
  - Bladder cancer [Unknown]

NARRATIVE: CASE EVENT DATE: 2011
